FAERS Safety Report 7162923-2 (Version None)
Quarter: 2010Q4

REPORT INFORMATION
  Report Type: 
  Country: None (occurrence: None)
  Receive Date: 20101215
  Receipt Date: 20100201
  Transmission Date: 20110411
  Serious: Yes (Hospitalization)
  Sender: FDA-Public Use
  Company Number: SE-PFIZER INC-2010012554

PATIENT
  Age: 28 Year
  Sex: Male

DRUGS (1)
  1. LYRICA [Suspect]
     Dosage: 10 CAPSULES, SINGLE
     Route: 048
     Dates: start: 20091213, end: 20091213

REACTIONS (1)
  - PSYCHOTIC DISORDER [None]
